FAERS Safety Report 9887735 (Version 1)
Quarter: 2014Q1

REPORT INFORMATION
  Report Type: Spontaneous
  Country: FR (occurrence: FR)
  Receive Date: 20140211
  Receipt Date: 20140211
  Transmission Date: 20141002
  Serious: Yes (Hospitalization)
  Sender: FDA-Public Use
  Company Number: FR-JNJFOC-20140203923

PATIENT
  Age: 87 Year
  Sex: Female

DRUGS (5)
  1. XARELTO [Suspect]
     Indication: ATRIAL FIBRILLATION
     Route: 048
     Dates: end: 20140118
  2. AMODEX [Concomitant]
     Route: 065
  3. CERIS [Concomitant]
     Route: 065
  4. KENZEN [Concomitant]
     Route: 065
  5. LIPANTHYL [Concomitant]
     Route: 065

REACTIONS (1)
  - Ischaemic stroke [Recovering/Resolving]
